FAERS Safety Report 6029002-9 (Version None)
Quarter: 2008Q4

REPORT INFORMATION
  Report Type: 
  Country: None (occurrence: None)
  Receive Date: 20081231
  Receipt Date: 20081217
  Transmission Date: 20090506
  Serious: Yes (Other)
  Sender: FDA-Public Use
  Company Number: 8040647

PATIENT
  Age: 26 Month
  Sex: Female

DRUGS (1)
  1. KEPPRA [Suspect]
     Indication: EPILEPSY
     Dosage: 1.5 ML 2/D PO
     Route: 048
     Dates: start: 20080924

REACTIONS (1)
  - NO ADVERSE EVENT [None]
